FAERS Safety Report 9388189 (Version 1)
Quarter: 2013Q3

REPORT INFORMATION
  Report Type: Spontaneous
  Country: US (occurrence: US)
  Receive Date: 20130708
  Receipt Date: 20130708
  Transmission Date: 20140515
  Serious: Yes (Other)
  Sender: FDA-Public Use
  Company Number: US-TEVA-411592USA

PATIENT
  Age: 30 Year
  Sex: Female
  Weight: 126.21 kg

DRUGS (3)
  1. PARAGARD 380A [Suspect]
     Indication: CONTRACEPTION
     Route: 015
     Dates: start: 20130604, end: 20130610
  2. IRON SUPPLEMENT [Concomitant]
     Indication: ANAEMIA
     Route: 065
  3. LABETALOL [Concomitant]
     Indication: BLOOD PRESSURE
     Route: 065

REACTIONS (2)
  - Vaginal haemorrhage [Recovered/Resolved]
  - Haematocrit decreased [Unknown]
